FAERS Safety Report 6568739-X (Version None)
Quarter: 2010Q1

REPORT INFORMATION
  Report Type: 
  Country: None (occurrence: None)
  Receive Date: 20100203
  Receipt Date: 20100120
  Transmission Date: 20100710
  Serious: Yes (Death, Other)
  Sender: FDA-Public Use
  Company Number: JP-SANOFI-AVENTIS-2010SA004042

PATIENT
  Age: 60 Year

DRUGS (5)
  1. ELPLAT [Suspect]
     Route: 041
     Dates: start: 20091221, end: 20091221
  2. AVASTIN [Suspect]
     Route: 041
     Dates: start: 20091221, end: 20091221
  3. CALCIUM LEVOFOLINATE [Concomitant]
     Route: 041
     Dates: start: 20091221, end: 20091221
  4. 5-FU [Concomitant]
     Route: 041
     Dates: start: 20091221, end: 20091221
  5. 5-FU [Concomitant]
     Route: 040
     Dates: start: 20091221, end: 20091221

REACTIONS (2)
  - NEUTROPHIL COUNT DECREASED [None]
  - TUMOUR HAEMORRHAGE [None]
